FAERS Safety Report 4723929-3 (Version None)
Quarter: 2005Q3

REPORT INFORMATION
  Report Type: 
  Country: None (occurrence: None)
  Receive Date: 20050722
  Receipt Date: 20050711
  Transmission Date: 20060218
  Serious: Yes (Hospitalization)
  Sender: FDA-Public Use
  Company Number: US-2005-010149

PATIENT
  Age: 52 Year
  Sex: Male
  Weight: 69.3 kg

DRUGS (1)
  1. BETASERON [Suspect]
     Indication: RELAPSING-REMITTING MULTIPLE SCLEROSIS
     Dosage: 8 MIU, EVERY 2D, INTRAMUSCULAR
     Route: 030
     Dates: start: 19950525, end: 20041201

REACTIONS (4)
  - COMA [None]
  - HAEMODIALYSIS [None]
  - INCORRECT ROUTE OF DRUG ADMINISTRATION [None]
  - RENAL FAILURE CHRONIC [None]
